FAERS Safety Report 7510269-2 (Version None)
Quarter: 2011Q2

REPORT INFORMATION
  Report Type: 
  Country: None (occurrence: None)
  Receive Date: 20110527
  Receipt Date: 20100315
  Transmission Date: 20111010
  Serious: No
  Sender: FDA-Public Use
  Company Number: US-BAYER-201016720NA

PATIENT
  Age: 35 Year
  Sex: Female

DRUGS (1)
  1. AVELOX [Suspect]
     Dosage: UNK
     Route: 048

REACTIONS (1)
  - TENDONITIS [None]
